FAERS Safety Report 15124539 (Version 3)
Quarter: 2018Q4

REPORT INFORMATION
  Report Type: Report from Study
  Country: CA (occurrence: CA)
  Receive Date: 20180710
  Receipt Date: 20181221
  Transmission Date: 20190204
  Serious: Yes (Other)
  Sender: FDA-Public Use
  Company Number: CA-SA-2018SA168575

PATIENT
  Age: 23 Year
  Sex: Female

DRUGS (9)
  1. MIRENA [Concomitant]
     Active Substance: LEVONORGESTREL
     Indication: PREMEDICATION
     Dosage: UNK UNK, QD
     Route: 048
  2. ACYCLOVIR ACTAVIS [Concomitant]
     Indication: PREMEDICATION
     Dosage: 200 MG, BID
     Route: 048
     Dates: start: 20180618
  3. VITAMIN D3 [Concomitant]
     Active Substance: CHOLECALCIFEROL
     Indication: PREMEDICATION
     Dosage: UNK UNK, QD
     Route: 048
  4. BENADRYL [Concomitant]
     Active Substance: DIPHENHYDRAMINE HYDROCHLORIDE
     Indication: PREMEDICATION
     Dosage: 50 MG; PO/IV ROUTE
     Dates: start: 20180618, end: 20180620
  5. TYLENOL [Concomitant]
     Active Substance: ACETAMINOPHEN
     Indication: PREMEDICATION
     Dosage: 975 MG, UNK
     Route: 048
     Dates: start: 20180618, end: 20180620
  6. ALEMTUZUMAB [Suspect]
     Active Substance: ALEMTUZUMAB
     Indication: RELAPSING-REMITTING MULTIPLE SCLEROSIS
     Dosage: 12 MG, QD
     Route: 041
     Dates: start: 20180618, end: 20180620
  7. METHYLPREDNISOLONE. [Suspect]
     Active Substance: METHYLPREDNISOLONE
     Indication: PREMEDICATION
     Dosage: 1 G, UNK
     Route: 042
     Dates: start: 20180618, end: 20180620
  8. CIMETIDINE [Concomitant]
     Active Substance: CIMETIDINE
     Indication: PREMEDICATION
     Dosage: 150 MG, UNK
     Route: 048
     Dates: start: 20180618, end: 20180620
  9. GRAVOL [Concomitant]
     Active Substance: DIMENHYDRINATE
     Indication: PREMEDICATION
     Dosage: 50 MG; PO/IV ROUTE
     Dates: start: 20180618

REACTIONS (20)
  - Nitrite urine present [Recovered/Resolved]
  - Urine ketone body present [Recovered/Resolved]
  - Headache [Recovered/Resolved]
  - Urinary tract infection bacterial [Unknown]
  - Blood urine present [Recovered/Resolved]
  - Fatigue [Recovering/Resolving]
  - Fungal infection [Recovered/Resolved]
  - Escherichia test positive [Unknown]
  - Protein urine present [Not Recovered/Not Resolved]
  - Nausea [Recovered/Resolved]
  - Haemoglobin decreased [Recovered/Resolved]
  - Lymphocyte count decreased [Not Recovered/Not Resolved]
  - Proteus test positive [Unknown]
  - White blood cell count decreased [Recovered/Resolved]
  - Urine leukocyte esterase positive [Not Recovered/Not Resolved]
  - Acne [Not Recovered/Not Resolved]
  - Urine analysis abnormal [Recovered/Resolved]
  - Culture urine [Not Recovered/Not Resolved]
  - Urine abnormality [Not Recovered/Not Resolved]
  - Oral candidiasis [Recovered/Resolved]

NARRATIVE: CASE EVENT DATE: 20180618
